FAERS Safety Report 7219669-1 (Version None)
Quarter: 2011Q1

REPORT INFORMATION
  Report Type: 
  Country: None (occurrence: None)
  Receive Date: 20110111
  Receipt Date: 20101230
  Transmission Date: 20110831
  Serious: Yes (Hospitalization)
  Sender: FDA-Public Use
  Company Number: PHHY2010US89415

PATIENT
  Sex: Female

DRUGS (9)
  1. VALTREX [Concomitant]
  2. LUTEIN [Concomitant]
  3. VITAMIN E [Concomitant]
  4. OMEPRAZOLE [Concomitant]
  5. URSODIOL [Concomitant]
  6. FOLIC ACID [Concomitant]
  7. TASIGNA [Suspect]
     Indication: CHRONIC MYELOID LEUKAEMIA
     Dosage: 200 MGS 2 TABS
     Route: 048
     Dates: start: 20100401, end: 20101101
  8. PREDNISONE [Concomitant]
  9. MULTI-VITAMIN [Concomitant]

REACTIONS (3)
  - OCULAR ICTERUS [None]
  - LIVER DISORDER [None]
  - YELLOW SKIN [None]
